FAERS Safety Report 8315210-0 (Version None)
Quarter: 2012Q2

REPORT INFORMATION
  Report Type: 
  Country: None (occurrence: None)
  Receive Date: 20120426
  Receipt Date: 20120419
  Transmission Date: 20120825
  Serious: Yes (Other)
  Sender: FDA-Public Use
  Company Number: US-BRISTOL-MYERS SQUIBB COMPANY-16536559

PATIENT
  Age: 72 Year
  Sex: Male

DRUGS (1)
  1. YERVOY [Suspect]
     Dosage: 1 DOSE
     Dates: start: 20120316

REACTIONS (1)
  - GASTROINTESTINAL DISORDER [None]
